FAERS Safety Report 6022709-9 (Version None)
Quarter: 2008Q4

REPORT INFORMATION
  Report Type: 
  Country: None (occurrence: None)
  Receive Date: 20081230
  Receipt Date: 20081120
  Transmission Date: 20090506
  Serious: Yes (Other)
  Sender: FDA-Public Use
  Company Number: US-BRISTOL-MYERS SQUIBB COMPANY-14390199

PATIENT
  Age: 75 Year
  Sex: Male

DRUGS (7)
  1. SPRYCEL [Suspect]
     Indication: CHRONIC MYELOID LEUKAEMIA
     Dosage: DOSE REDUCED TO 100MG ORAL DAILY: PUT ON HOLD ON 21OCT08,
     Route: 048
     Dates: start: 20070601
  2. ASPIRIN [Concomitant]
  3. LASIX [Concomitant]
  4. ATENOLOL [Concomitant]
  5. FINASTERIDE [Concomitant]
  6. RAMIPRIL [Concomitant]
  7. PROCHLORPERAZINE [Concomitant]

REACTIONS (1)
  - PLEURAL EFFUSION [None]
